FAERS Safety Report 24756518 (Version 1)
Quarter: 2024Q4

REPORT INFORMATION
  Report Type: Spontaneous
  Country: CN (occurrence: CN)
  Receive Date: 20241220
  Receipt Date: 20241220
  Transmission Date: 20250114
  Serious: Yes (Other)
  Sender: JIANGSU HENGRUI PHARMACEUTICALS CO., LTD.
  Company Number: CN-SHANGHAI HENG RUI PHARMACEUTICAL CO., LTD-H2024242715

PATIENT
  Age: 69 Year
  Weight: 60 kg

DRUGS (1)
  1. SEVOFLURANE [Suspect]
     Active Substance: SEVOFLURANE
     Indication: Induction and maintenance of anaesthesia
     Dosage: 20 ML

REACTIONS (3)
  - Muscle twitching [Recovering/Resolving]
  - Seizure [Recovering/Resolving]
  - Oxygen saturation decreased [Recovering/Resolving]
